FAERS Safety Report 6711461-7 (Version None)
Quarter: 2010Q2

REPORT INFORMATION
  Report Type: 
  Country: None (occurrence: None)
  Receive Date: 20100505
  Receipt Date: 20100423
  Transmission Date: 20101027
  Serious: Yes (Hospitalization)
  Sender: FDA-Public Use
  Company Number: JP-PFIZER INC-2010053368

PATIENT
  Age: 79 Year
  Sex: Male

DRUGS (6)
  1. SUNITINIB MALATE [Suspect]
     Indication: RENAL CELL CARCINOMA
     Dosage: 37.5 MG, 1X/DAY
     Route: 048
     Dates: start: 20091109
  2. VALSARTAN [Concomitant]
     Dosage: UNK
     Route: 048
  3. HYPEN [Concomitant]
     Dosage: UNK
     Route: 048
  4. FLIVAS [Concomitant]
     Dosage: UNK
     Route: 048
  5. NORVASC [Concomitant]
     Dosage: UNK
     Route: 048
     Dates: start: 20091207
  6. THYRADIN S [Concomitant]
     Dosage: UNK
     Route: 048
     Dates: start: 20100210

REACTIONS (2)
  - NEPHROGENIC ANAEMIA [None]
  - NEPHROTIC SYNDROME [None]
